FAERS Safety Report 20166821 (Version 2)
Quarter: 2022Q1

REPORT INFORMATION
  Report Type: Spontaneous
  Country: US (occurrence: US)
  Receive Date: 20211209
  Receipt Date: 20220315
  Transmission Date: 20220423
  Serious: Yes (Disabling, Other)
  Sender: FDA-Public Use
  Company Number: US-AMERICAN REGENT INC-2021003198

PATIENT
  Age: 37 Year
  Sex: Female
  Weight: 101 kg

DRUGS (2)
  1. FERRIC CARBOXYMALTOSE [Suspect]
     Active Substance: FERRIC CARBOXYMALTOSE
     Indication: Iron deficiency anaemia
     Dosage: 750 MG
     Route: 042
  2. FERRIC CARBOXYMALTOSE [Suspect]
     Active Substance: FERRIC CARBOXYMALTOSE
     Dosage: 750 MG IN 250 ML NS
     Route: 042
     Dates: start: 20211130, end: 20211130

REACTIONS (7)
  - Hypokinesia [Recovered/Resolved]
  - Lethargy [Recovered/Resolved]
  - Mental impairment [Recovered/Resolved]
  - Chest discomfort [Recovering/Resolving]
  - Blood phosphorus decreased [Recovered/Resolved]
  - Fatigue [Recovering/Resolving]
  - Hypokalaemia [Recovered/Resolved]

NARRATIVE: CASE EVENT DATE: 20211130
